FAERS Safety Report 8277590-4 (Version None)
Quarter: 2012Q2

REPORT INFORMATION
  Report Type: 
  Country: None (occurrence: None)
  Receive Date: 20120412
  Receipt Date: 20120402
  Transmission Date: 20120825
  Serious: Yes (Death, Life-Threatening, Hospitalization)
  Sender: FDA-Public Use
  Company Number: AU-CELGENEUS-008-50794-11103493

PATIENT
  Sex: Male
  Weight: 69.2 kg

DRUGS (3)
  1. PANOBINOSTAT [Suspect]
     Dosage: 20 MILLIGRAM
     Route: 065
     Dates: start: 20101001, end: 20111029
  2. VIDAZA [Suspect]
  3. VIDAZA [Suspect]
     Dosage: 75 MILLIGRAM/SQ. METER
     Route: 065
     Dates: start: 20100927, end: 20111029

REACTIONS (2)
  - CLOSTRIDIUM BACTERAEMIA [None]
  - ACUTE MYELOID LEUKAEMIA [None]
